FAERS Safety Report 4999198-6 (Version None)
Quarter: 2006Q2

REPORT INFORMATION
  Report Type: 
  Country: None (occurrence: None)
  Receive Date: 20060509
  Receipt Date: 20060421
  Transmission Date: 20061013
  Serious: Yes (Hospitalization)
  Sender: FDA-Public Use
  Company Number: US_0509121862

PATIENT
  Sex: Female
  Weight: 102 kg

DRUGS (1)
  1. ZYPREXA [Suspect]
     Dates: start: 20000101, end: 20050101

REACTIONS (4)
  - BLOOD CHOLESTEROL ABNORMAL [None]
  - CARDIAC DISORDER [None]
  - DIABETES MELLITUS [None]
  - OBESITY [None]
